FAERS Safety Report 23593440 (Version 2)
Quarter: 2024Q2

REPORT INFORMATION
  Report Type: Spontaneous
  Country: IL (occurrence: IL)
  Receive Date: 20240304
  Receipt Date: 20240506
  Transmission Date: 20240716
  Serious: Yes (Death, Hospitalization, Other)
  Sender: FDA-Public Use
  Company Number: IL-GILEAD-2024-0664120

PATIENT
  Age: 52 Year
  Sex: Male

DRUGS (1)
  1. YESCARTA [Suspect]
     Active Substance: AXICABTAGENE CILOLEUCEL
     Indication: Product used for unknown indication
     Dosage: UNK
     Route: 065
     Dates: start: 20230315, end: 20230315

REACTIONS (2)
  - Disease progression [Unknown]
  - Organ failure [Fatal]

NARRATIVE: CASE EVENT DATE: 20231001
